FAERS Safety Report 4444845-0 (Version None)
Quarter: 2004Q3

REPORT INFORMATION
  Report Type: 
  Country: None (occurrence: None)
  Receive Date: 20040903
  Receipt Date: 20040823
  Transmission Date: 20050211
  Serious: No
  Sender: FDA-Public Use
  Company Number: 2004SE04749

PATIENT
  Age: 24 Year
  Sex: Female

DRUGS (2)
  1. SEROQUEL [Suspect]
     Indication: SCHIZOPHRENIA
     Dosage: 1200 MG DAILY PO
     Route: 048
  2. SOLIAN [Concomitant]

REACTIONS (1)
  - LYMPHOCYTE COUNT DECREASED [None]
